FAERS Safety Report 18335221 (Version 3)
Quarter: 2021Q3

REPORT INFORMATION
  Report Type: Report from Study
  Country: RU (occurrence: RU)
  Receive Date: 20201001
  Receipt Date: 20210711
  Transmission Date: 20211014
  Serious: Yes (Other)
  Sender: FDA-Public Use
  Company Number: NVSC2020RU263724

PATIENT
  Sex: Female

DRUGS (2)
  1. DABRAFENIB [Suspect]
     Active Substance: DABRAFENIB
     Indication: MALIGNANT MELANOMA
     Dosage: 150 MG, BID(120 SIGNA)
     Route: 065
     Dates: start: 201910
  2. TRAMETINIB [Suspect]
     Active Substance: TRAMETINIB
     Indication: MALIGNANT MELANOMA
     Dosage: 2 MG, QD(30 SIGNA)
     Route: 065
     Dates: start: 201910

REACTIONS (9)
  - Skin mass [Unknown]
  - Malignant melanoma [Unknown]
  - Metastases to spinal cord [Unknown]
  - Asthenia [Unknown]
  - Metastases to lung [Unknown]
  - Headache [Unknown]
  - Malignant neoplasm progression [Unknown]
  - Nausea [Unknown]
  - Paraparesis [Unknown]
